FAERS Safety Report 6269409-8 (Version None)
Quarter: 2009Q3

REPORT INFORMATION
  Report Type: 
  Country: None (occurrence: None)
  Receive Date: 20090715
  Receipt Date: 20090710
  Transmission Date: 20100115
  Serious: Yes (Hospitalization)
  Sender: FDA-Public Use
  Company Number: DE-AMGEN-US355938

PATIENT
  Age: 78 Year
  Sex: Female

DRUGS (1)
  1. ENBREL [Suspect]
     Indication: RHEUMATOID ARTHRITIS
     Route: 058
     Dates: start: 20081001, end: 20090101

REACTIONS (5)
  - ABDOMINAL OPERATION [None]
  - ARTHRALGIA [None]
  - CONDITION AGGRAVATED [None]
  - IMPAIRED HEALING [None]
  - SCAR [None]
